FAERS Safety Report 18777806 (Version 1)
Quarter: 2021Q1

REPORT INFORMATION
  Report Type: Spontaneous
  Country: US (occurrence: US)
  Receive Date: 20210122
  Receipt Date: 20210122
  Transmission Date: 20210419
  Serious: No
  Sender: FDA-Public Use
  Company Number: 2020SGN03980

PATIENT
  Sex: Female

DRUGS (3)
  1. TUKYSA [Suspect]
     Active Substance: TUCATINIB
     Indication: BREAST CANCER FEMALE
     Dosage: 300 MG, BID WITH FOOD
     Route: 065
     Dates: start: 20200824
  2. XELODA [Suspect]
     Active Substance: CAPECITABINE
     Dosage: UNK, 7 DAYS ON, THEN 7 DAYS OFF
     Route: 065
  3. XELODA [Suspect]
     Active Substance: CAPECITABINE
     Dosage: UNK
     Route: 065

REACTIONS (18)
  - Blood corticotrophin decreased [Unknown]
  - Fatigue [Unknown]
  - Abdominal distension [Recovering/Resolving]
  - Red blood cell count decreased [Unknown]
  - Cortisol decreased [Unknown]
  - Weight decreased [Unknown]
  - Unevaluable event [Unknown]
  - Abdominal pain [Unknown]
  - Product dose omission issue [Unknown]
  - Animal scratch [Unknown]
  - Adverse drug reaction [Unknown]
  - Palmar-plantar erythrodysaesthesia syndrome [Unknown]
  - Diarrhoea [Unknown]
  - Nausea [Unknown]
  - Pain [Unknown]
  - Hepatic enzyme increased [Unknown]
  - Adrenal insufficiency [Unknown]
  - Hypothyroidism [Unknown]
